FAERS Safety Report 13521301 (Version 3)
Quarter: 2017Q3

REPORT INFORMATION
  Report Type: Spontaneous
  Country: US (occurrence: US)
  Receive Date: 20170508
  Receipt Date: 20170817
  Transmission Date: 20171127
  Serious: No
  Sender: FDA-Public Use
  Company Number: US-PFIZER INC-2017196816

PATIENT
  Age: 88 Year
  Sex: Male
  Weight: 107.94 kg

DRUGS (2)
  1. SUTENT [Suspect]
     Active Substance: SUNITINIB MALATE
     Indication: RENAL CANCER
     Dosage: 25 MG, CYCLIC (1-28 EVERY 28 DAYS)
     Route: 048
     Dates: start: 20170420
  2. SUTENT [Suspect]
     Active Substance: SUNITINIB MALATE
     Dosage: 25 MG, CYCLIC [1-28 EVERY 28 DAYS] [D1-28 Q42 DAYS]
     Route: 048
     Dates: start: 201708

REACTIONS (4)
  - Memory impairment [Not Recovered/Not Resolved]
  - Prostatic specific antigen increased [Unknown]
  - Decreased appetite [Unknown]
  - Muscular weakness [Not Recovered/Not Resolved]

NARRATIVE: CASE EVENT DATE: 2017
